FAERS Safety Report 7832822-9 (Version None)
Quarter: 2011Q4

REPORT INFORMATION
  Report Type: 
  Country: None (occurrence: None)
  Receive Date: 20111024
  Receipt Date: 20111019
  Transmission Date: 20120403
  Serious: Yes (Hospitalization)
  Sender: FDA-Public Use
  Company Number: FR-SP-E2011-06326

PATIENT
  Sex: Female

DRUGS (8)
  1. ESCITALOPRAM [Concomitant]
  2. XANAX [Concomitant]
  3. TUBERSOL [Suspect]
     Indication: TUBERCULIN TEST
     Route: 023
     Dates: start: 20111011, end: 20111011
  4. PANTOPRAZOLE [Concomitant]
  5. PREDNISONE [Concomitant]
  6. REMICADE [Suspect]
     Indication: RHEUMATOID ARTHRITIS
     Route: 042
     Dates: start: 20111011, end: 20111011
  7. SOLU-MEDROL [Suspect]
  8. CONTRAMAL (TRAMADOL) CONTRAMAL (TRAMADOL) [Concomitant]

REACTIONS (3)
  - FACE OEDEMA [None]
  - DYSPNOEA [None]
  - ANAPHYLACTIC SHOCK [None]
